FAERS Safety Report 16864565 (Version 2)
Quarter: 2019Q4

REPORT INFORMATION
  Report Type: Spontaneous
  Country: CN (occurrence: CN)
  Receive Date: 20190928
  Receipt Date: 20191015
  Transmission Date: 20200122
  Serious: Yes (Other)
  Sender: FDA-Public Use
  Company Number: PHHY2019CN202732

PATIENT
  Sex: Male

DRUGS (4)
  1. ASPIRIN. [Concomitant]
     Active Substance: ASPIRIN
     Indication: PRODUCT USED FOR UNKNOWN INDICATION
     Dosage: UNK
     Route: 065
  2. PLAVIX [Concomitant]
     Active Substance: CLOPIDOGREL BISULFATE
     Indication: PRODUCT USED FOR UNKNOWN INDICATION
     Dosage: UNK
     Route: 065
  3. VOTRIENT [Suspect]
     Active Substance: PAZOPANIB HYDROCHLORIDE
     Dosage: 3 DF, UNK
     Route: 048
  4. VOTRIENT [Suspect]
     Active Substance: PAZOPANIB HYDROCHLORIDE
     Indication: RENAL CANCER
     Dosage: 2 DF, UNK
     Route: 048
     Dates: start: 20190302

REACTIONS (14)
  - White blood cell count decreased [Unknown]
  - Heart rate increased [Recovering/Resolving]
  - Rhinorrhoea [Unknown]
  - Haematochezia [Unknown]
  - Productive cough [Recovering/Resolving]
  - Vomiting [Unknown]
  - Asthma [Unknown]
  - Cardiac failure [Unknown]
  - Chest discomfort [Recovering/Resolving]
  - Protein total decreased [Unknown]
  - Cough [Recovering/Resolving]
  - Peripheral swelling [Unknown]
  - Anaemia [Unknown]
  - Dyspnoea [Recovering/Resolving]
